FAERS Safety Report 18617396 (Version 1)
Quarter: 2020Q4

REPORT INFORMATION
  Report Type: Spontaneous
  Country: US (occurrence: US)
  Receive Date: 20201215
  Receipt Date: 20201215
  Transmission Date: 20210114
  Serious: Yes (Hospitalization, Other)
  Sender: FDA-Public Use
  Company Number: US-PFIZER INC-2020489846

PATIENT
  Age: 42 Year
  Sex: Male
  Weight: 82 kg

DRUGS (12)
  1. TRIMETHOPRIM SULFAMETHOXAZOLE [Concomitant]
     Active Substance: SULFAMETHOXAZOLE\TRIMETHOPRIM
     Dosage: UNK
  2. VANCOMYCIN [Concomitant]
     Active Substance: VANCOMYCIN
     Dosage: UNK
  3. IMIPENEM AND CILASTATIN [Concomitant]
     Active Substance: CILASTATIN SODIUM\IMIPENEM
     Dosage: UNK
  4. GENTAMICIN SULFATE. [Suspect]
     Active Substance: GENTAMICIN SULFATE
     Dosage: UNK (DOSAGES AS HIGH AS 240 MG EVERY 6 HRS WERE REQUIRED)
  5. VECURONIUM BROMIDE. [Interacting]
     Active Substance: VECURONIUM BROMIDE
     Dosage: 25 MG/HR (0.3 MG/ KG/HR)
     Route: 042
  6. ACETAMINOPHEN. [Concomitant]
     Active Substance: ACETAMINOPHEN
     Dosage: UNK
  7. DOPAMINE [Concomitant]
     Active Substance: DOPAMINE HYDROCHLORIDE
     Dosage: UNK
  8. ISOPROTERENOL HCL [Concomitant]
     Active Substance: ISOPROTERENOL HYDROCHLORIDE
     Dosage: UNK
  9. TICARCILLIN DISODIUM AND POTASSIUM CLAVULANATE [Concomitant]
     Dosage: UNK
  10. MORPHINE [Concomitant]
     Active Substance: MORPHINE
     Dosage: 10 MG/HR
     Route: 042
  11. VECURONIUM BROMIDE. [Interacting]
     Active Substance: VECURONIUM BROMIDE
     Dosage: 10 MG/HR (0.12 MG/KG/HR)
     Route: 042
  12. DOBUTAMINE [Concomitant]
     Active Substance: DOBUTAMINE HYDROCHLORIDE
     Dosage: UNK

REACTIONS (3)
  - Peripheral paralysis [Recovered/Resolved]
  - Neuromuscular blockade [Recovered/Resolved]
  - Drug interaction [Recovered/Resolved]
